FAERS Safety Report 12318201 (Version 1)
Quarter: 2016Q2

REPORT INFORMATION
  Report Type: Spontaneous
  Country: DE (occurrence: DE)
  Receive Date: 20160429
  Receipt Date: 20160429
  Transmission Date: 20160815
  Serious: Yes (Other)
  Sender: FDA-Public Use
  Company Number: PHHY2016DE057229

PATIENT
  Age: 57 Year
  Sex: Male

DRUGS (1)
  1. GILENYA [Suspect]
     Active Substance: FINGOLIMOD HYDROCHLORIDE
     Indication: MULTIPLE SCLEROSIS RELAPSE
     Route: 065

REACTIONS (11)
  - Skin lesion [Recovering/Resolving]
  - Dysuria [Unknown]
  - Facial paralysis [Unknown]
  - Skin mass [Recovering/Resolving]
  - Paraparesis [Unknown]
  - Anaplastic large cell lymphoma T- and null-cell types [Unknown]
  - Skin ulcer [Unknown]
  - Pruritus [Unknown]
  - Dermatitis psoriasiform [Unknown]
  - Progressive multiple sclerosis [Unknown]
  - Intention tremor [Unknown]
